FAERS Safety Report 26180435 (Version 1)
Quarter: 2025Q4

REPORT INFORMATION
  Report Type: Spontaneous
  Country: US (occurrence: US)
  Receive Date: 20251219
  Receipt Date: 20251219
  Transmission Date: 20260117
  Serious: Yes (Hospitalization, Other)
  Sender: BLUEPRINT MEDICINES
  Company Number: US-Blueprint Medicines Corporation-2025-AER-02706

PATIENT
  Age: 71 Year
  Sex: Female

DRUGS (1)
  1. AYVAKIT [Suspect]
     Active Substance: AVAPRITINIB
     Indication: Mastocytoma
     Route: 065
     Dates: end: 20251114

REACTIONS (5)
  - Oesophageal stenosis [Unknown]
  - Oesophageal haemorrhage [Unknown]
  - Condition aggravated [Unknown]
  - Feeding disorder [Unknown]
  - Malaise [Unknown]
